FAERS Safety Report 4719444-3 (Version None)
Quarter: 2005Q3

REPORT INFORMATION
  Report Type: 
  Country: None (occurrence: None)
  Receive Date: 20050719
  Receipt Date: 20050705
  Transmission Date: 20060218
  Serious: Yes (Other)
  Sender: FDA-Public Use
  Company Number: US_0503113661

PATIENT
  Age: 30 Year
  Sex: Female
  Weight: 75 kg

DRUGS (4)
  1. ZYPREXA [Suspect]
     Indication: ANXIETY
     Dates: start: 20030301, end: 20040101
  2. DIVALPROEX (VALPROATE SEMISODIUM) [Concomitant]
  3. PAROXETINE HCL [Concomitant]
  4. SERTRALINE HCL [Concomitant]

REACTIONS (7)
  - GLYCOSURIA [None]
  - HYPERPHAGIA [None]
  - HYPOGLYCAEMIA [None]
  - PANCREATITIS [None]
  - POLYDIPSIA [None]
  - POLYURIA [None]
  - WEIGHT DECREASED [None]
